FAERS Safety Report 7910312-2 (Version None)
Quarter: 2011Q4

REPORT INFORMATION
  Report Type: 
  Country: None (occurrence: None)
  Receive Date: 20111111
  Receipt Date: 20110629
  Transmission Date: 20120403
  Serious: Yes (Other)
  Sender: FDA-Public Use
  Company Number: BR-JNJFOC-20111101261

PATIENT
  Age: 83 Year
  Sex: Female

DRUGS (4)
  1. LISINOPRIL [Concomitant]
     Indication: HYPERTENSION
  2. METHOTREXATE [Concomitant]
     Indication: RHEUMATOID ARTHRITIS
     Dates: start: 20070401
  3. IBANDRONATE SODIUM [Concomitant]
     Indication: OSTEOPOROSIS
  4. REMICADE [Suspect]
     Indication: RHEUMATOID ARTHRITIS
     Route: 042
     Dates: start: 20070401, end: 20110201

REACTIONS (4)
  - ARTERIOSCLEROSIS [None]
  - CHOLELITHIASIS [None]
  - HODGKIN'S DISEASE MIXED CELLULARITY STAGE UNSPECIFIED [None]
  - BRONCHIECTASIS [None]
